FAERS Safety Report 8843190 (Version 1)
Quarter: 2012Q4

REPORT INFORMATION
  Report Type: 
  Country: US (occurrence: US)
  Receive Date: 20121016
  Receipt Date: 20121016
  Transmission Date: 20130627
  Serious: Yes (Hospitalization, Other)
  Sender: FDA-Public Use
  Company Number: US-ROCHE-GNE095693

PATIENT
  Age: 12 Year
  Sex: Male
  Weight: 49.25 kg

DRUGS (14)
  1. NUTROPIN [Suspect]
     Indication: BODY HEIGHT BELOW NORMAL
     Route: 058
     Dates: start: 20000417
  2. FELBATOL [Concomitant]
  3. GABAPENTIN [Concomitant]
  4. ZANTAC [Concomitant]
  5. LOPRESSOR [Concomitant]
  6. LORAZEPAM [Concomitant]
  7. GAMMA GLOBULIN [Concomitant]
  8. ZOFRAN [Concomitant]
  9. MIDRIN [Concomitant]
  10. AMOXICILLIN [Concomitant]
  11. ADVIL [Concomitant]
  12. MECLIZINE [Concomitant]
  13. PREDNISONE [Concomitant]
  14. NEURONTIN [Concomitant]

REACTIONS (6)
  - Convulsion [Recovered/Resolved]
  - Optic neuritis [Unknown]
  - Vomiting [Unknown]
  - Central nervous system inflammation [Unknown]
  - Blindness [Unknown]
  - Malaise [Unknown]
